FAERS Safety Report 5102496-9 (Version None)
Quarter: 2006Q3

REPORT INFORMATION
  Report Type: 
  Country: None (occurrence: None)
  Receive Date: 20060908
  Receipt Date: 20060823
  Transmission Date: 20061208
  Serious: Yes (Hospitalization)
  Sender: FDA-Public Use
  Company Number: DSA_81674_2006

PATIENT
  Age: 22 Year
  Sex: Female

DRUGS (8)
  1. XYREM [Suspect]
     Indication: MIDDLE INSOMNIA
     Dosage: 9 G TWICE NIGHTLY PO
     Route: 048
     Dates: start: 20040101, end: 20051001
  2. XYREM [Suspect]
     Indication: MIDDLE INSOMNIA
     Dosage: 45 G NIGHTLY PO
     Route: 048
     Dates: start: 20051001
  3. XYREM [Suspect]
     Indication: MIDDLE INSOMNIA
     Dosage: 9 G 4 TIMES A DAY PO
     Route: 048
     Dates: start: 20050101, end: 20051101
  4. XYREM [Suspect]
     Indication: MIDDLE INSOMNIA
     Dosage: DF PO
     Route: 048
     Dates: start: 20050101, end: 20050101
  5. XYREM [Suspect]
     Indication: MIDDLE INSOMNIA
     Dosage: 15 G NIGHTLY PO
     Route: 048
     Dates: start: 20060101, end: 20060828
  6. ROSERUN [Concomitant]
  7. XANAX [Concomitant]
  8. TRAZODONE HCL [Concomitant]

REACTIONS (13)
  - CONVULSION [None]
  - DRUG ABUSER [None]
  - DRUG EFFECT DECREASED [None]
  - DYSARTHRIA [None]
  - FALL [None]
  - HEPATIC FAILURE [None]
  - INCOHERENT [None]
  - INCORRECT DOSE ADMINISTERED [None]
  - OEDEMA PERIPHERAL [None]
  - RENAL FAILURE [None]
  - RESTLESSNESS [None]
  - SMOKER [None]
  - SUICIDAL BEHAVIOUR [None]
